FAERS Safety Report 20092177 (Version 1)
Quarter: 2021Q4

REPORT INFORMATION
  Report Type: Spontaneous
  Country: US (occurrence: None)
  Receive Date: 20211119
  Receipt Date: 20211119
  Transmission Date: 20220303
  Serious: Yes (Life-Threatening)
  Sender: FDA-Public Use
  Company Number: None

PATIENT
  Age: 58 Year
  Sex: Male
  Weight: 65 kg

DRUGS (1)
  1. ERTAPENEM [Suspect]
     Active Substance: ERTAPENEM
     Indication: Infection
     Dosage: FREQUENCY : DAILY;?
     Route: 042
     Dates: start: 20210605, end: 20210612

REACTIONS (2)
  - Seizure [None]
  - Lethargy [None]

NARRATIVE: CASE EVENT DATE: 20210612
